FAERS Safety Report 13434127 (Version 2)
Quarter: 2017Q3

REPORT INFORMATION
  Report Type: Spontaneous
  Country: US (occurrence: US)
  Receive Date: 20170413
  Receipt Date: 20170920
  Transmission Date: 20171127
  Serious: No
  Sender: FDA-Public Use
  Company Number: US-PFIZER INC-2017156675

PATIENT
  Age: 63 Year
  Sex: Male
  Weight: 81.45 kg

DRUGS (1)
  1. XALKORI [Suspect]
     Active Substance: CRIZOTINIB
     Indication: LUNG CANCER METASTATIC
     Dosage: 250 MG, 2X/DAY
     Route: 048
     Dates: start: 20170228

REACTIONS (3)
  - Rash [Unknown]
  - Oedema [Unknown]
  - Rhinitis [Recovered/Resolved]
